FAERS Safety Report 10405483 (Version 2)
Quarter: 2014Q4

REPORT INFORMATION
  Report Type: Report from Study
  Country: BR (occurrence: BR)
  Receive Date: 20140825
  Receipt Date: 20141015
  Transmission Date: 20150528
  Serious: Yes (Other)
  Sender: FDA-Public Use
  Company Number: BR-BAYER-2014-122133

PATIENT
  Age: 67 Year
  Sex: Male
  Weight: 57 kg

DRUGS (7)
  1. NPH INSULIN [Concomitant]
     Active Substance: INSULIN BEEF
     Indication: DIABETES MELLITUS
     Dosage: 12 U IN THE MORNING AND 12U AT NIGHT
     Route: 058
     Dates: start: 2009
  2. CARBAMAZEPINE. [Concomitant]
     Active Substance: CARBAMAZEPINE
     Indication: NEUROPATHY PERIPHERAL
     Dosage: 0.5 DF, BID
     Route: 048
     Dates: start: 2004
  3. NEXAVAR [Suspect]
     Active Substance: SORAFENIB
     Indication: HEPATIC NEOPLASM
     Dosage: 2 DF IN MORNING AND 1DF AT NIGHT
     Dates: start: 201409
  4. ENALAPRIL [Concomitant]
     Active Substance: ENALAPRIL
     Indication: HYPERTENSION
     Dosage: 1 DF, QD
     Route: 048
  5. NEXAVAR [Suspect]
     Active Substance: SORAFENIB
     Indication: HEPATIC NEOPLASM
     Dosage: 400 MG, BID
     Route: 048
     Dates: start: 2014, end: 2014
  6. NEXAVAR [Suspect]
     Active Substance: SORAFENIB
     Indication: HEPATIC NEOPLASM
     Dosage: 1 DF OM AND 2 DF AT NIGHT
     Route: 048
     Dates: start: 2014, end: 20140801
  7. AMITRIPTYLINE [Concomitant]
     Active Substance: AMITRIPTYLINE
     Indication: NEUROPATHY PERIPHERAL
     Dosage: 1 DF, QD
     Route: 048
     Dates: start: 2004

REACTIONS (3)
  - Hepatic neoplasm [Unknown]
  - Dysentery [Not Recovered/Not Resolved]
  - Dysentery [Recovered/Resolved]

NARRATIVE: CASE EVENT DATE: 2014
